FAERS Safety Report 4332344-6 (Version None)
Quarter: 2004Q2

REPORT INFORMATION
  Report Type: 
  Country: None (occurrence: None)
  Receive Date: 20040401
  Receipt Date: 20040322
  Transmission Date: 20050107
  Serious: Yes (Disabling)
  Sender: FDA-Public Use
  Company Number: 2004GB00699

PATIENT
  Age: 55 Year
  Sex: Female
  Weight: 100.8 kg

DRUGS (6)
  1. CRESTOR [Suspect]
     Indication: HYPERCHOLESTEROLAEMIA
     Dosage: 10 MG DAILY PO
     Route: 048
     Dates: start: 20040123, end: 20040220
  2. ADALAT [Concomitant]
  3. BENDROFLUAZIDE [Concomitant]
  4. MIXTARD HUMAN 70/30 [Concomitant]
  5. VALSARTAN [Concomitant]
  6. METFORMIN [Concomitant]

REACTIONS (1)
  - MOUTH ULCERATION [None]
